FAERS Safety Report 16298994 (Version 10)
Quarter: 2022Q2

REPORT INFORMATION
  Report Type: Spontaneous
  Country: US (occurrence: US)
  Receive Date: 20190510
  Receipt Date: 20220426
  Transmission Date: 20220721
  Serious: Yes (Hospitalization, Disabling, Other)
  Sender: FDA-Public Use
  Company Number: US-PFIZER INC-2019194804

PATIENT
  Age: 79 Year
  Sex: Female

DRUGS (3)
  1. TOVIAZ [Suspect]
     Active Substance: FESOTERODINE FUMARATE
     Indication: Hypertension
     Dosage: 8 MG, 1X/DAY
     Dates: start: 2016
  2. TOVIAZ [Suspect]
     Active Substance: FESOTERODINE FUMARATE
     Indication: Urinary incontinence
     Dosage: 20 MG, 1X/DAY
  3. XALATAN [Concomitant]
     Active Substance: LATANOPROST
     Dosage: UNK (BOTH EYES)
     Route: 031

REACTIONS (13)
  - Paralysis [Unknown]
  - Cerebrovascular accident [Recovered/Resolved]
  - Drug dependence [Unknown]
  - Diabetes mellitus [Unknown]
  - Joint injury [Unknown]
  - Foot deformity [Unknown]
  - Bladder disorder [Unknown]
  - Hypoacusis [Unknown]
  - Confusional state [Unknown]
  - Drug ineffective [Unknown]
  - Product prescribing issue [Unknown]
  - Intentional product misuse [Unknown]
  - Prescribed overdose [Unknown]

NARRATIVE: CASE EVENT DATE: 20180702
